FAERS Safety Report 5652459-X (Version None)
Quarter: 2008Q1

REPORT INFORMATION
  Report Type: 
  Country: None (occurrence: None)
  Receive Date: 20080306
  Receipt Date: 20080303
  Transmission Date: 20080703
  Serious: Yes (Death, Hospitalization)
  Sender: FDA-Public Use
  Company Number: FR-WYE-G01184408

PATIENT
  Sex: Male

DRUGS (9)
  1. TAZOCILLINE [Suspect]
     Indication: PNEUMONIA
     Dosage: 8 G TOTAL DAILY
     Route: 042
     Dates: start: 20070920, end: 20070922
  2. TAZOCILLINE [Suspect]
     Indication: SEPSIS
  3. SPIRONOLACTONE [Suspect]
     Indication: HYPERTENSION
     Dosage: 25 MG STRENGTH; UNKNOWN
     Route: 048
     Dates: end: 20070912
  4. KENZEN [Concomitant]
     Indication: HYPERTENSION
     Dosage: 8 MG STRENGHT; UNKNOWN
     Route: 048
     Dates: end: 20070912
  5. PERFALGAN [Concomitant]
     Dosage: 1 G TOTAL DAILY ON REQUEST; IN THE CASE OF FEVER
     Route: 042
     Dates: start: 20070920
  6. LANSOPRAZOLE [Concomitant]
     Dosage: UNKNOWN
     Route: 048
     Dates: start: 20070920
  7. AMIKLIN [Suspect]
     Indication: PNEUMONIA
     Route: 042
     Dates: start: 20070920, end: 20070922
  8. AMIKLIN [Suspect]
     Indication: SEPSIS
  9. ALTIZIDE [Suspect]
     Indication: HYPERTENSION
     Dosage: 15 MG STRENGTH; UNKNOWN
     Route: 048
     Dates: end: 20070912

REACTIONS (4)
  - DERMATITIS BULLOUS [None]
  - RESPIRATORY MONILIASIS [None]
  - SHOCK [None]
  - STATUS EPILEPTICUS [None]
